FAERS Safety Report 7729457-5 (Version None)
Quarter: 2011Q3

REPORT INFORMATION
  Report Type: 
  Country: None (occurrence: None)
  Receive Date: 20110901
  Receipt Date: 20110315
  Transmission Date: 20111222
  Serious: No
  Sender: FDA-Public Use
  Company Number: M2011-011B

PATIENT
  Age: 53 Year
  Sex: Female

DRUGS (5)
  1. ALLERGEN MIX [Suspect]
     Indication: IMMUNOMODULATORY THERAPY
     Dosage: 0.5 ML TWICE MONTHLY INJECTION
  2. ALLERGEN MIX [Suspect]
     Indication: IMMUNOMODULATORY THERAPY
     Dosage: 0.5 ML TWICE MONTHLY INJECTION
  3. EFFEXOR [Concomitant]
  4. ALLEGRA [Concomitant]
  5. NASONEX [Concomitant]

REACTIONS (3)
  - CHEST DISCOMFORT [None]
  - SYNCOPE [None]
  - ERYTHEMA [None]
